FAERS Safety Report 16572900 (Version 3)
Quarter: 2019Q3

REPORT INFORMATION
  Report Type: Spontaneous
  Country: NZ (occurrence: NZ)
  Receive Date: 20190715
  Receipt Date: 20190723
  Transmission Date: 20191004
  Serious: Yes (Other)
  Sender: FDA-Public Use
  Company Number: NZ-PFIZER INC-2019298598

PATIENT
  Age: 65 Year
  Sex: Female

DRUGS (3)
  1. IBUPROFEN. [Suspect]
     Active Substance: IBUPROFEN
  2. BENDROFLUMETHIAZIDE [Interacting]
     Active Substance: BENDROFLUMETHIAZIDE
  3. CANDESARTAN. [Interacting]
     Active Substance: CANDESARTAN

REACTIONS (3)
  - Drug interaction [Unknown]
  - Acute kidney injury [Unknown]
  - Orthostatic hypotension [Unknown]
